FAERS Safety Report 25739995 (Version 1)
Quarter: 2025Q3

REPORT INFORMATION
  Report Type: Spontaneous
  Country: US (occurrence: US)
  Receive Date: 20250829
  Receipt Date: 20250829
  Transmission Date: 20251021
  Serious: Yes (Death, Life-Threatening, Hospitalization)
  Sender: MYLAN
  Company Number: US-MYLANLABS-2025M1072773

PATIENT
  Age: 66 Year
  Sex: Female

DRUGS (24)
  1. DEXAMETHASONE [Suspect]
     Active Substance: DEXAMETHASONE
     Indication: Plasma cell myeloma
  2. DEXAMETHASONE [Suspect]
     Active Substance: DEXAMETHASONE
     Route: 065
  3. DEXAMETHASONE [Suspect]
     Active Substance: DEXAMETHASONE
     Route: 065
  4. DEXAMETHASONE [Suspect]
     Active Substance: DEXAMETHASONE
  5. ETOPOSIDE [Suspect]
     Active Substance: ETOPOSIDE
     Indication: Plasma cell myeloma
  6. ETOPOSIDE [Suspect]
     Active Substance: ETOPOSIDE
     Route: 065
  7. ETOPOSIDE [Suspect]
     Active Substance: ETOPOSIDE
     Route: 065
  8. ETOPOSIDE [Suspect]
     Active Substance: ETOPOSIDE
  9. TECLISTAMAB [Suspect]
     Active Substance: TECLISTAMAB
     Indication: Plasma cell myeloma
  10. TECLISTAMAB [Suspect]
     Active Substance: TECLISTAMAB
     Route: 065
  11. TECLISTAMAB [Suspect]
     Active Substance: TECLISTAMAB
     Route: 065
  12. TECLISTAMAB [Suspect]
     Active Substance: TECLISTAMAB
  13. TALQUETAMAB [Suspect]
     Active Substance: TALQUETAMAB
     Indication: Plasma cell myeloma
  14. TALQUETAMAB [Suspect]
     Active Substance: TALQUETAMAB
     Route: 065
  15. TALQUETAMAB [Suspect]
     Active Substance: TALQUETAMAB
     Route: 065
  16. TALQUETAMAB [Suspect]
     Active Substance: TALQUETAMAB
  17. CYCLOPHOSPHAMIDE [Suspect]
     Active Substance: CYCLOPHOSPHAMIDE
     Indication: Plasma cell myeloma
  18. CYCLOPHOSPHAMIDE [Suspect]
     Active Substance: CYCLOPHOSPHAMIDE
     Route: 065
  19. CYCLOPHOSPHAMIDE [Suspect]
     Active Substance: CYCLOPHOSPHAMIDE
     Route: 065
  20. CYCLOPHOSPHAMIDE [Suspect]
     Active Substance: CYCLOPHOSPHAMIDE
  21. CISPLATIN [Suspect]
     Active Substance: CISPLATIN
     Indication: Plasma cell myeloma
  22. CISPLATIN [Suspect]
     Active Substance: CISPLATIN
     Route: 065
  23. CISPLATIN [Suspect]
     Active Substance: CISPLATIN
     Route: 065
  24. CISPLATIN [Suspect]
     Active Substance: CISPLATIN

REACTIONS (4)
  - Progressive multifocal leukoencephalopathy [Fatal]
  - Neurological decompensation [Fatal]
  - JC virus infection [Unknown]
  - Off label use [Unknown]
